FAERS Safety Report 22135804 (Version 1)
Quarter: 2023Q1

REPORT INFORMATION
  Report Type: Spontaneous
  Country: US (occurrence: None)
  Receive Date: 20230324
  Receipt Date: 20230324
  Transmission Date: 20230417
  Serious: Yes (Hospitalization, Other)
  Sender: FDA-Public Use
  Company Number: US-MLMSERVICE-20230309-4156843-1

PATIENT
  Age: 82 Year
  Sex: Female

DRUGS (3)
  1. FUROSEMIDE [Suspect]
     Active Substance: FUROSEMIDE
     Indication: Acute myocardial infarction
     Dosage: UNKNOWN
     Route: 065
  2. HYDRALAZINE [Suspect]
     Active Substance: HYDRALAZINE HYDROCHLORIDE
     Indication: Acute myocardial infarction
     Dosage: UNKNOWN
     Route: 065
  3. NITROGLYCERIN [Suspect]
     Active Substance: NITROGLYCERIN
     Indication: Acute myocardial infarction
     Dosage: UNKNOWN
     Route: 065

REACTIONS (3)
  - Ventricular hyperkinesia [Recovered/Resolved]
  - Mitral valve incompetence [Recovered/Resolved]
  - Left ventricle outflow tract obstruction [Recovered/Resolved]
